FAERS Safety Report 9093825 (Version 1)
Quarter: 2013Q1

REPORT INFORMATION
  Report Type: Spontaneous
  Country: US (occurrence: US)
  Receive Date: 20130131
  Receipt Date: 20130131
  Transmission Date: 20140127
  Serious: Yes (Other)
  Sender: FDA-Public Use
  Company Number: US-ABBOTT-12P-163-1014019-00

PATIENT
  Sex: Female

DRUGS (1)
  1. HUMIRA [Suspect]
     Indication: CROHN^S DISEASE

REACTIONS (6)
  - Adenoiditis [Unknown]
  - Systemic lupus erythematosus [Unknown]
  - Latent tuberculosis [Unknown]
  - Psoriasis [Unknown]
  - Liver injury [Unknown]
  - Migraine [Unknown]
